FAERS Safety Report 13662826 (Version 1)
Quarter: 2017Q2

REPORT INFORMATION
  Report Type: Spontaneous
  Country: US (occurrence: US)
  Receive Date: 20170616
  Receipt Date: 20170616
  Transmission Date: 20170830
  Serious: Yes (Disabling)
  Sender: FDA-Public Use
  Company Number: None

PATIENT
  Age: 63 Year
  Sex: Female
  Weight: 75.15 kg

DRUGS (1)
  1. HUMIRA [Suspect]
     Active Substance: ADALIMUMAB
     Indication: ARTHRITIS
     Dosage: QUANTITY:1 INJECTION(S);OTHER FREQUENCY:BI WEEKLY;?
     Route: 030

REACTIONS (6)
  - Urinary incontinence [None]
  - Dyskinesia [None]
  - Loss of personal independence in daily activities [None]
  - Restlessness [None]
  - Diarrhoea [None]
  - Memory impairment [None]

NARRATIVE: CASE EVENT DATE: 20170505
